FAERS Safety Report 5609081-0 (Version None)
Quarter: 2008Q1

REPORT INFORMATION
  Report Type: 
  Country: None (occurrence: None)
  Receive Date: 20080130
  Receipt Date: 20080130
  Transmission Date: 20080703
  Serious: Yes (Hospitalization)
  Sender: FDA-Public Use
  Company Number: None

PATIENT
  Sex: Female
  Weight: 64 kg

DRUGS (4)
  1. CISPLATIN [Suspect]
     Dosage: 86 MG
  2. DOXORUBICIN HYDROCHLORIDE [Suspect]
     Dosage: 77 MG
  3. G-CSF (FILGRASTIM, AMGEN) [Suspect]
     Dosage: 6 MG
  4. TAXOL [Suspect]
     Dosage: 274 MG

REACTIONS (10)
  - ALVEOLITIS [None]
  - AORTIC VALVE INCOMPETENCE [None]
  - BLOOD CULTURE POSITIVE [None]
  - CATHETER SITE INFECTION [None]
  - HYPONATRAEMIA [None]
  - INSOMNIA [None]
  - NEUTROPENIA [None]
  - ORAL INTAKE REDUCED [None]
  - PNEUMONIA [None]
  - STAPHYLOCOCCAL INFECTION [None]
